FAERS Safety Report 15453619 (Version 1)
Quarter: 2018Q4

REPORT INFORMATION
  Report Type: Spontaneous
  Country: US (occurrence: US)
  Receive Date: 20181001
  Receipt Date: 20181001
  Transmission Date: 20190204
  Serious: No
  Sender: FDA-Public Use
  Company Number: US-SUNOVION-2018SUN003628

PATIENT
  Sex: Male
  Weight: 108.84 kg

DRUGS (2)
  1. LATUDA [Suspect]
     Active Substance: LURASIDONE HYDROCHLORIDE
     Indication: PRODUCT USED FOR UNKNOWN INDICATION
     Dosage: 20 MG, QD
     Route: 048
  2. LUVOX [Concomitant]
     Active Substance: FLUVOXAMINE MALEATE
     Indication: ANXIETY
     Dosage: 100 MG, QD
     Route: 048

REACTIONS (2)
  - Toothache [Not Recovered/Not Resolved]
  - Oral pain [Unknown]
